FAERS Safety Report 4768229-0 (Version None)
Quarter: 2005Q3

REPORT INFORMATION
  Report Type: 
  Country: None (occurrence: None)
  Receive Date: 20050912
  Receipt Date: 20050810
  Transmission Date: 20060218
  Serious: Yes (Disabling)
  Sender: FDA-Public Use
  Company Number: 384576

PATIENT
  Age: 22 Year
  Sex: Male
  Weight: 76.2 kg

DRUGS (1)
  1. ACCUTANE [Suspect]
     Indication: ACNE
     Dosage: ORAL
     Route: 048
     Dates: start: 19880615

REACTIONS (61)
  - ABDOMINAL DISTENSION [None]
  - ABNORMAL BEHAVIOUR [None]
  - ANAL FISSURE [None]
  - ANAL FISTULA [None]
  - ANAL ULCER [None]
  - ANGER [None]
  - ANHEDONIA [None]
  - ANORECTAL DISORDER [None]
  - ANXIETY [None]
  - ARTHRALGIA [None]
  - ARTHRITIS [None]
  - BACK PAIN [None]
  - BIPOLAR DISORDER [None]
  - BLOOD PRESSURE INCREASED [None]
  - CATARACT [None]
  - CELLULITIS [None]
  - CHANGE OF BOWEL HABIT [None]
  - CHRONIC FATIGUE SYNDROME [None]
  - COLITIS [None]
  - CROHN'S DISEASE [None]
  - DEFAECATION URGENCY [None]
  - DEPRESSION [None]
  - DRUG ABUSER [None]
  - DRUG EFFECT DECREASED [None]
  - DRUG INEFFECTIVE [None]
  - DRUG INTOLERANCE [None]
  - DRUG RESISTANCE [None]
  - ENDOSCOPY ABNORMAL [None]
  - FISTULA [None]
  - GASTRITIS VIRAL [None]
  - GASTROINTESTINAL DISORDER [None]
  - GASTROOESOPHAGEAL REFLUX DISEASE [None]
  - HAEMORRHOIDS [None]
  - HIATUS HERNIA [None]
  - INFLAMMATORY BOWEL DISEASE [None]
  - INFLUENZA LIKE ILLNESS [None]
  - INJURY [None]
  - INSOMNIA [None]
  - INTESTINAL HAEMORRHAGE [None]
  - IRRITABLE BOWEL SYNDROME [None]
  - JOB DISSATISFACTION [None]
  - MIDDLE INSOMNIA [None]
  - MOOD SWINGS [None]
  - MYOFASCIAL PAIN SYNDROME [None]
  - NASOPHARYNGITIS [None]
  - NIGHT SWEATS [None]
  - PAIN [None]
  - PAIN IN EXTREMITY [None]
  - POLYP [None]
  - PRODUCTIVE COUGH [None]
  - RASH [None]
  - RECTAL HAEMORRHAGE [None]
  - RECTAL POLYP [None]
  - REFUSAL OF TREATMENT BY PATIENT [None]
  - SELF INJURIOUS BEHAVIOUR [None]
  - SINUS DISORDER [None]
  - STRESS [None]
  - SUICIDAL IDEATION [None]
  - SURGERY [None]
  - THERAPY NON-RESPONDER [None]
  - WEIGHT DECREASED [None]
